FAERS Safety Report 24343328 (Version 2)
Quarter: 2024Q4

REPORT INFORMATION
  Report Type: Spontaneous
  Country: CA (occurrence: CA)
  Receive Date: 20240920
  Receipt Date: 20241115
  Transmission Date: 20250115
  Serious: Yes (Other)
  Sender: PFIZER
  Company Number: CA-PFIZER INC-202400259592

PATIENT
  Age: 55 Year
  Sex: Male

DRUGS (1)
  1. ABRILADA [Suspect]
     Active Substance: ADALIMUMAB-AFZB
     Indication: Hidradenitis
     Dosage: 40 MG, WEEKLY (160MG WK 0, 80 MG WK 2 THEN 40MG WEEKLY)
     Route: 058
     Dates: start: 20230801

REACTIONS (1)
  - Pancreatic carcinoma [Unknown]
